FAERS Safety Report 23539106 (Version 1)
Quarter: 2024Q1

REPORT INFORMATION
  Report Type: Spontaneous
  Country: DE (occurrence: DE)
  Receive Date: 20240219
  Receipt Date: 20240219
  Transmission Date: 20240409
  Serious: Yes (Hospitalization, Other)
  Sender: FDA-Public Use
  Company Number: DE-002147023-NVSC2023DE253908

PATIENT
  Age: 75 Year
  Sex: Female
  Weight: 60 kg

DRUGS (2)
  1. BEOVU [Suspect]
     Active Substance: BROLUCIZUMAB-DBLL
     Indication: Neovascular age-related macular degeneration
     Dosage: UNK (INTRAVITREAL OPERATIVE MEDICATION APPLICATION (IVOM), INJECTION, BOTH SIDES)
     Route: 031
     Dates: start: 20230829, end: 20230829
  2. BEOVU [Suspect]
     Active Substance: BROLUCIZUMAB-DBLL
     Dosage: UNK (INTRAVITREAL OPERATIVE MEDICATION APPLICATION (IVOM), INJECTION, BOTH SIDES)
     Route: 031
     Dates: start: 2023, end: 20231010

REACTIONS (6)
  - Uveitis [Recovered/Resolved with Sequelae]
  - Ocular discomfort [Recovered/Resolved with Sequelae]
  - Vitreous opacities [Recovered/Resolved with Sequelae]
  - Intraocular pressure increased [Recovered/Resolved with Sequelae]
  - Keratic precipitates [Recovered/Resolved with Sequelae]
  - Cytomegalovirus test positive [Recovered/Resolved with Sequelae]

NARRATIVE: CASE EVENT DATE: 20231116
